FAERS Safety Report 5216166-X (Version None)
Quarter: 2007Q1

REPORT INFORMATION
  Report Type: 
  Country: None (occurrence: None)
  Receive Date: 20070123
  Receipt Date: 20070112
  Transmission Date: 20070707
  Serious: Yes (Other)
  Sender: FDA-Public Use
  Company Number: JP-PFIZER INC-2006133665

PATIENT
  Sex: Male

DRUGS (3)
  1. NORVASC [Suspect]
     Route: 048
  2. MICARDIS [Suspect]
     Route: 048
  3. ATENOLOL [Suspect]
     Route: 048

REACTIONS (2)
  - INTERSTITIAL LUNG DISEASE [None]
  - PULMONARY ALVEOLAR HAEMORRHAGE [None]
